FAERS Safety Report 13678053 (Version 1)
Quarter: 2017Q2

REPORT INFORMATION
  Report Type: Spontaneous
  Country: US (occurrence: US)
  Receive Date: 20170621
  Receipt Date: 20170621
  Transmission Date: 20170830
  Serious: Yes (Hospitalization)
  Sender: FDA-Public Use
  Company Number: None

PATIENT
  Age: 29 Year
  Sex: Male

DRUGS (1)
  1. LETAIRIS [Suspect]
     Active Substance: AMBRISENTAN
     Indication: PULMONARY ARTERIAL HYPERTENSION
     Route: 048
     Dates: start: 20170516

REACTIONS (7)
  - Haemoptysis [None]
  - Peripheral swelling [None]
  - Diarrhoea [None]
  - Abdominal distension [None]
  - Condition aggravated [None]
  - Faeces discoloured [None]
  - Dyspnoea [None]

NARRATIVE: CASE EVENT DATE: 20170530
